FAERS Safety Report 25615745 (Version 1)
Quarter: 2025Q3

REPORT INFORMATION
  Report Type: Spontaneous
  Country: US (occurrence: US)
  Receive Date: 20250729
  Receipt Date: 20250729
  Transmission Date: 20251020
  Serious: No
  Sender: TOLMAR
  Company Number: US-Tolmar-TLM-2025-04446

PATIENT
  Age: 16 Year
  Sex: Female

DRUGS (3)
  1. ELIGARD [Suspect]
     Active Substance: LEUPROLIDE ACETATE
     Indication: Gender dysphoria
     Dates: start: 20250703
  2. ELIGARD [Suspect]
     Active Substance: LEUPROLIDE ACETATE
  3. DEVICE [Suspect]
     Active Substance: DEVICE
     Indication: Gender dysphoria

REACTIONS (4)
  - Intercepted product preparation error [Unknown]
  - Device leakage [Unknown]
  - Device mechanical issue [Unknown]
  - Off label use [Unknown]

NARRATIVE: CASE EVENT DATE: 20250703
